FAERS Safety Report 4869076-1 (Version None)
Quarter: 2005Q4

REPORT INFORMATION
  Report Type: 
  Country: None (occurrence: None)
  Receive Date: 20051222
  Receipt Date: 20051209
  Transmission Date: 20060501
  Serious: Yes (Hospitalization)
  Sender: FDA-Public Use
  Company Number: 2005BH003155

PATIENT
  Age: 28 Year
  Sex: Female
  Weight: 67.1324 kg

DRUGS (11)
  1. POLYGAM S/D [Suspect]
     Indication: TOXIC SHOCK SYNDROME STREPTOCOCCAL
     Dosage: 0.4 GM/KG/EVERY DAY;IV
     Route: 042
     Dates: start: 20010914, end: 20010918
  2. PENICILLIN [Concomitant]
  3. ABELCET [Concomitant]
  4. TYLENOL [Concomitant]
  5. CIPROFLOXACIN [Concomitant]
  6. BENADRYL [Concomitant]
  7. FLAGYL [Concomitant]
  8. INTRAVENOUS GAMMAGLOBULIN [Concomitant]
  9. VANCOMYCIN [Concomitant]
  10. PROPOFOL [Concomitant]
  11. HEPARIN [Concomitant]

REACTIONS (21)
  - ABDOMINAL DISTENSION [None]
  - ACTIVATED PARTIAL THROMBOPLASTIN TIME PROLONGED [None]
  - ACUTE RESPIRATORY DISTRESS SYNDROME [None]
  - ANAEMIA [None]
  - ARTERIAL DISORDER [None]
  - ASTHENIA [None]
  - COAGULOPATHY [None]
  - CONFUSIONAL STATE [None]
  - DYSPNOEA [None]
  - EMBOLISM [None]
  - HAEMATOCRIT DECREASED [None]
  - HAEMOGLOBIN DECREASED [None]
  - INTERNATIONAL NORMALISED RATIO INCREASED [None]
  - LEUKOCYTOSIS [None]
  - PHARYNGOLARYNGEAL PAIN [None]
  - PLATELET COUNT INCREASED [None]
  - PULMONARY ARTERIAL PRESSURE INCREASED [None]
  - PYREXIA [None]
  - SINUS TACHYCARDIA [None]
  - STREPTOCOCCAL BACTERAEMIA [None]
  - THROMBOSIS [None]
